FAERS Safety Report 6652674-2 (Version None)
Quarter: 2010Q1

REPORT INFORMATION
  Report Type: 
  Country: None (occurrence: None)
  Receive Date: 20100326
  Receipt Date: 20100318
  Transmission Date: 20100710
  Serious: Yes (Hospitalization, Other)
  Sender: FDA-Public Use
  Company Number: CA-BAYER-200937360NA

PATIENT
  Age: 42 Year
  Sex: Female

DRUGS (1)
  1. YAZ [Suspect]
     Indication: CONTRACEPTION
     Route: 048
     Dates: start: 20090201, end: 20090907

REACTIONS (5)
  - ACNE [None]
  - APHASIA [None]
  - HEADACHE [None]
  - HEMIPARESIS [None]
  - TRANSIENT ISCHAEMIC ATTACK [None]
